FAERS Safety Report 4354343-0 (Version None)
Quarter: 2004Q2

REPORT INFORMATION
  Report Type: 
  Country: None (occurrence: None)
  Receive Date: 20040503
  Receipt Date: 20040426
  Transmission Date: 20050107
  Serious: Yes (Life-Threatening, Hospitalization, Other)
  Sender: FDA-Public Use
  Company Number: 200410291BNE

PATIENT
  Age: 90 Year
  Sex: Male

DRUGS (4)
  1. ASPIRIN [Suspect]
     Dosage: 75 MG, TOTAL DAILY, ORAL
     Route: 048
     Dates: start: 20000701, end: 20030715
  2. LOSARTAN POTASSIUM [Concomitant]
  3. GTN [Concomitant]
  4. BENDROFLUAZIDE [Concomitant]

REACTIONS (2)
  - GASTROINTESTINAL HAEMORRHAGE [None]
  - OESOPHAGEAL RUPTURE [None]
